FAERS Safety Report 9295877 (Version 1)
Quarter: 2013Q2

REPORT INFORMATION
  Report Type: Spontaneous
  Country: JP (occurrence: JP)
  Receive Date: 20130517
  Receipt Date: 20130517
  Transmission Date: 20140414
  Serious: Yes (Other)
  Sender: FDA-Public Use
  Company Number: JP-PFIZER INC-2013147969

PATIENT
  Age: 67 Year
  Sex: Male

DRUGS (1)
  1. MIGLITOL [Suspect]
     Indication: DIABETES MELLITUS
     Dosage: UNK
     Route: 048

REACTIONS (1)
  - Portal venous gas [Recovered/Resolved]
